FAERS Safety Report 25573784 (Version 1)
Quarter: 2025Q3

REPORT INFORMATION
  Report Type: Spontaneous
  Country: GB (occurrence: GB)
  Receive Date: 20250717
  Receipt Date: 20250717
  Transmission Date: 20251020
  Serious: Yes (Death, Other)
  Sender: MYLAN
  Company Number: GB-MYLANLABS-2025M1060276

PATIENT
  Sex: Male

DRUGS (1)
  1. CLOZARIL [Suspect]
     Active Substance: CLOZAPINE
     Indication: Schizophrenia

REACTIONS (2)
  - Death [Fatal]
  - Overdose [Unknown]

NARRATIVE: CASE EVENT DATE: 20250713
